FAERS Safety Report 10008085 (Version 90)
Quarter: 2019Q1

REPORT INFORMATION
  Report Type: Report from Study
  Country: CA (occurrence: CA)
  Receive Date: 20140313
  Receipt Date: 20190212
  Transmission Date: 20190417
  Serious: Yes (Hospitalization, Other)
  Sender: FDA-Public Use
  Company Number: PHHY2013CA071340

PATIENT
  Age: 73 Year
  Sex: Female
  Weight: 50.34 kg

DRUGS (19)
  1. SANDOSTATIN LAR DEPOT [Suspect]
     Active Substance: OCTREOTIDE ACETATE
     Dosage: 20 MG, Q2W
     Route: 030
     Dates: start: 20160609
  2. TAMBOCOR [Concomitant]
     Active Substance: FLECAINIDE ACETATE
     Indication: PRODUCT USED FOR UNKNOWN INDICATION
     Dosage: 50 MG, BID
     Route: 065
  3. SANDOSTATIN LAR DEPOT [Suspect]
     Active Substance: OCTREOTIDE ACETATE
     Dosage: 30 MG, Q2W
     Route: 030
     Dates: start: 20181211
  4. DILTIAZEM HYDROCHLORIDE SANDOZ [Suspect]
     Active Substance: DILTIAZEM HYDROCHLORIDE
     Indication: PRODUCT USED FOR UNKNOWN INDICATION
     Dosage: 140 MG, QD
     Route: 065
     Dates: start: 201609
  5. DILTIAZEM HYDROCHLORIDE SANDOZ [Suspect]
     Active Substance: DILTIAZEM HYDROCHLORIDE
     Dosage: 180 MG, QD
     Route: 065
     Dates: end: 201609
  6. PRADAXA [Suspect]
     Active Substance: DABIGATRAN ETEXILATE MESYLATE
     Indication: ARRHYTHMIA
     Dosage: 150 MG, BID
     Route: 065
  7. SANDOSTATIN LAR DEPOT [Suspect]
     Active Substance: OCTREOTIDE ACETATE
     Indication: NEUROENDOCRINE TUMOUR
     Dosage: 20 MG, BIW
     Route: 030
     Dates: start: 20130308
  8. SANDOSTATIN LAR DEPOT [Suspect]
     Active Substance: OCTREOTIDE ACETATE
     Indication: METASTASES TO LIVER
     Dosage: 30 MG, QMO
     Route: 030
     Dates: start: 20140930
  9. SANDOSTATIN [Suspect]
     Active Substance: OCTREOTIDE ACETATE
     Indication: METASTASES TO LIVER
  10. TIAZAC [Concomitant]
     Active Substance: DILTIAZEM HYDROCHLORIDE
     Indication: PRODUCT USED FOR UNKNOWN INDICATION
     Dosage: 180 MG, QD
     Route: 065
  11. TIAZAC [Concomitant]
     Active Substance: DILTIAZEM HYDROCHLORIDE
     Dosage: 120 MG, QD
     Route: 065
  12. CORTICOSTEROID NOS [Concomitant]
     Active Substance: CORTICOSTEROID NOS
     Indication: PRODUCT USED FOR UNKNOWN INDICATION
     Dosage: 100 UG, BID
     Route: 065
     Dates: start: 20171025
  13. SANDOSTATIN LAR DEPOT [Suspect]
     Active Substance: OCTREOTIDE ACETATE
     Dosage: 10 MG EVERY 4 WEEKS (2 WEEKS POST 40 MG DOSE, AS REPORTED)
     Route: 030
     Dates: start: 20160121
  14. SANDOSTATIN LAR DEPOT [Suspect]
     Active Substance: OCTREOTIDE ACETATE
     Dosage: 30 MG EVERY 4 WEEKS (2 WEEKS POST 10 MG DOSE, AS REPORTED)
     Route: 030
     Dates: start: 20160204
  15. CORTISONE [Suspect]
     Active Substance: CORTISONE\HYDROCORTISONE
     Indication: PRODUCT USED FOR UNKNOWN INDICATION
     Route: 065
  16. SANDOSTATIN [Suspect]
     Active Substance: OCTREOTIDE ACETATE
     Indication: NEUROENDOCRINE TUMOUR
     Dosage: 40 MG, QMO
     Route: 058
     Dates: start: 201602
  17. DILTIAZEM HYDROCHLORIDE SANDOZ [Suspect]
     Active Substance: DILTIAZEM HYDROCHLORIDE
     Dosage: 120 MG, QD
     Route: 065
     Dates: start: 20160924
  18. PRADAXA [Suspect]
     Active Substance: DABIGATRAN ETEXILATE MESYLATE
     Indication: ATRIAL FIBRILLATION
  19. SANDOSTATIN LAR DEPOT [Suspect]
     Active Substance: OCTREOTIDE ACETATE
     Dosage: 40 MG, QMO (EVERY 4 WEEKS)
     Route: 030
     Dates: start: 20160229

REACTIONS (60)
  - Cataract [Unknown]
  - Hepatic pain [Unknown]
  - Malaise [Unknown]
  - Abdominal adhesions [Recovering/Resolving]
  - Diarrhoea [Recovering/Resolving]
  - Carcinoid syndrome [Unknown]
  - Pleural effusion [Unknown]
  - Metastases to liver [Unknown]
  - Oedema [Unknown]
  - Sciatic nerve injury [Unknown]
  - Injection site haematoma [Unknown]
  - Injection site haemorrhage [Not Recovered/Not Resolved]
  - Feeling abnormal [Unknown]
  - Cough [Unknown]
  - Tachycardia [Unknown]
  - Platelet count decreased [Unknown]
  - Erythema [Unknown]
  - Dyspnoea [Unknown]
  - Metastases to peritoneum [Not Recovered/Not Resolved]
  - Glaucoma [Unknown]
  - Body temperature decreased [Unknown]
  - Pain in extremity [Unknown]
  - Gait disturbance [Unknown]
  - Inappropriate schedule of product administration [Unknown]
  - Intestinal obstruction [Recovering/Resolving]
  - Confusional state [Not Recovered/Not Resolved]
  - Blood pressure increased [Unknown]
  - Petechiae [Unknown]
  - Injection site oedema [Unknown]
  - Needle issue [Unknown]
  - Pulmonary embolism [Unknown]
  - Back pain [Unknown]
  - Neuroendocrine tumour [Not Recovered/Not Resolved]
  - Arthralgia [Unknown]
  - Sinusitis [Unknown]
  - Oedema peripheral [Unknown]
  - Fatigue [Unknown]
  - Injection site pain [Unknown]
  - Atrial fibrillation [Unknown]
  - Cardiac failure [Unknown]
  - Weight decreased [Unknown]
  - Piloerection [Unknown]
  - Skin disorder [Unknown]
  - Incorrect dose administered [Unknown]
  - Contusion [Unknown]
  - Dizziness [Unknown]
  - Loss of consciousness [Unknown]
  - Arrhythmia [Unknown]
  - Blood pressure decreased [Unknown]
  - Decreased appetite [Not Recovered/Not Resolved]
  - Malignant neoplasm progression [Unknown]
  - Neck mass [Unknown]
  - Blood pressure systolic increased [Unknown]
  - Anaemia [Not Recovered/Not Resolved]
  - Heart rate decreased [Unknown]
  - Fall [Unknown]
  - Nausea [Unknown]
  - Hypersensitivity [Unknown]
  - Urticaria [Unknown]
  - Constipation [Unknown]

NARRATIVE: CASE EVENT DATE: 20131213
